FAERS Safety Report 21197931 (Version 1)
Quarter: 2022Q3

REPORT INFORMATION
  Report Type: Report from Study
  Country: US (occurrence: US)
  Receive Date: 20220810
  Receipt Date: 20220810
  Transmission Date: 20221027
  Serious: Yes (Other)
  Sender: FDA-Public Use
  Company Number: US-BRISTOL-MYERS SQUIBB COMPANY-2022-086093

PATIENT
  Age: 60 Year
  Sex: Female
  Weight: 58.97 kg

DRUGS (16)
  1. POMALYST [Suspect]
     Active Substance: POMALIDOMIDE
     Indication: Plasma cell myeloma
     Dosage: DAILY FOR DAY 1 THROUGH 21 OF EACH 28DAYS CYCLE
     Route: 048
  2. REVLIMID [Concomitant]
     Active Substance: LENALIDOMIDE
     Indication: Product used for unknown indication
     Route: 065
  3. NOCTURA [MELATONIN] [Concomitant]
     Indication: Product used for unknown indication
     Route: 065
  4. LEUCOVORIN CALCIUM [Concomitant]
     Active Substance: LEUCOVORIN CALCIUM
     Indication: Product used for unknown indication
     Route: 065
  5. TEKA LOPERAMIDE [Concomitant]
     Indication: Product used for unknown indication
     Route: 065
  6. EYE DROPS [TETRYZOLINE HYDROCHLORIDE] [Concomitant]
     Indication: Product used for unknown indication
     Route: 065
  7. ASPIRIN TEVA [Concomitant]
     Indication: Product used for unknown indication
     Route: 065
  8. PANTOPRAZOLE PS [Concomitant]
     Indication: Product used for unknown indication
     Route: 065
  9. FERROCEBRINA [FERROUS SULFATE] [Concomitant]
     Indication: Product used for unknown indication
     Route: 065
  10. PANTESTONE [ANASTROZOLE] [Concomitant]
     Indication: Product used for unknown indication
     Route: 065
  11. PHENA [PROMETHAZINE HYDROCHLORIDE] [Concomitant]
     Indication: Product used for unknown indication
     Route: 065
  12. ACYCLOVIR AKRI [Concomitant]
     Indication: Product used for unknown indication
     Route: 065
  13. CHOLECALCIFEROL [Concomitant]
     Active Substance: CHOLECALCIFEROL
     Indication: Product used for unknown indication
     Route: 065
  14. GLYMESASON [DEXAMETHASONE] [Concomitant]
     Indication: Product used for unknown indication
     Route: 065
  15. VITAMINS [Concomitant]
     Active Substance: VITAMINS
     Indication: Product used for unknown indication
     Route: 065
  16. LOSEC [Concomitant]
     Active Substance: OMEPRAZOLE
     Indication: Product used for unknown indication
     Route: 065

REACTIONS (3)
  - Tooth disorder [Unknown]
  - Necrosis [Unknown]
  - Diarrhoea [Unknown]
